FAERS Safety Report 7187196-6 (Version None)
Quarter: 2010Q4

REPORT INFORMATION
  Report Type: 
  Country: None (occurrence: None)
  Receive Date: 20101222
  Receipt Date: 20101218
  Transmission Date: 20110411
  Serious: Yes (Hospitalization)
  Sender: FDA-Public Use
  Company Number: JP-ABBOTT-09P-087-0609283-00

PATIENT
  Sex: Female
  Weight: 47 kg

DRUGS (13)
  1. HUMIRA [Suspect]
     Indication: RHEUMATOID ARTHRITIS
     Route: 058
     Dates: start: 20090822, end: 20091030
  2. HUMIRA [Suspect]
     Route: 058
     Dates: start: 20091128
  3. MELOXICAM [Concomitant]
     Indication: RHEUMATOID ARTHRITIS
     Dates: end: 20091113
  4. MELOXICAM [Concomitant]
     Dates: start: 20091128
  5. METHOTREXATE [Concomitant]
     Indication: RHEUMATOID ARTHRITIS
     Dates: end: 20091108
  6. METHOTREXATE [Concomitant]
     Dates: start: 20091129
  7. FOLIC ACID [Concomitant]
     Indication: PROPHYLAXIS
     Dosage: 5MG/WK
     Dates: end: 20091109
  8. FOLIC ACID [Concomitant]
     Indication: ADVERSE DRUG REACTION
     Dosage: 5MG/WK
     Dates: start: 20091130
  9. ISONIAZID [Concomitant]
     Indication: ANTIBIOTIC PROPHYLAXIS
     Dosage: 200MG DAILY DOSE
     Dates: start: 20090822, end: 20091113
  10. ISONIAZID [Concomitant]
     Dates: start: 20091128
  11. GENTAMICIN SULFATE [Concomitant]
     Indication: PROPHYLAXIS
     Dosage: 0.1% AS NEEDED
     Route: 062
     Dates: start: 20091003, end: 20091113
  12. GENTAMICIN SULFATE [Concomitant]
     Indication: PURULENCE
  13. KETOPROFEN [Concomitant]
     Indication: RHEUMATOID ARTHRITIS
     Dates: start: 20091030, end: 20091113

REACTIONS (2)
  - CELLULITIS [None]
  - HYPERGLYCAEMIA [None]
